FAERS Safety Report 13939782 (Version 1)
Quarter: 2017Q3

REPORT INFORMATION
  Report Type: Spontaneous
  Country: US (occurrence: None)
  Receive Date: 20170906
  Receipt Date: 20170906
  Transmission Date: 20171127
  Serious: Yes (Other)
  Sender: FDA-Public Use
  Company Number: None

PATIENT
  Age: 65 Year
  Sex: Female
  Weight: 61.23 kg

DRUGS (2)
  1. VITAMINS [Concomitant]
     Active Substance: VITAMINS
  2. AMOXICILLIN 875MG TABLETS [Suspect]
     Active Substance: AMOXICILLIN
     Indication: BRONCHITIS
     Route: 048
     Dates: start: 20151222, end: 20160102

REACTIONS (4)
  - Neuralgia [None]
  - Asthenia [None]
  - Insomnia [None]
  - Seizure [None]

NARRATIVE: CASE EVENT DATE: 20160104
